FAERS Safety Report 19847430 (Version 1)
Quarter: 2021Q3

REPORT INFORMATION
  Report Type: Spontaneous
  Country: DE (occurrence: DE)
  Receive Date: 20210917
  Receipt Date: 20210917
  Transmission Date: 20211014
  Serious: Yes (Death, Hospitalization, Other)
  Sender: FDA-Public Use
  Company Number: DE-TEVA-2021-DE-1952326

PATIENT
  Age: 79 Year
  Sex: Male
  Weight: 75 kg

DRUGS (20)
  1. NITROFURANTOIN. [Concomitant]
     Active Substance: NITROFURANTOIN
     Dosage: 100 MILLIGRAM DAILY; 0?0?1?0
  2. INSULIN LISPRO [Concomitant]
     Active Substance: INSULIN LISPRO
     Dosage: SCHEME
  3. LACTULOSE. [Concomitant]
     Active Substance: LACTULOSE
     Dosage: 1 DOSAGE FORMS DAILY; 1?0?0?0
  4. TORASEMID [Concomitant]
     Active Substance: TORSEMIDE
     Dosage: 10 MILLIGRAM DAILY;  1?0?0?0
  5. ACETYLCYSTEINE. [Concomitant]
     Active Substance: ACETYLCYSTEINE
     Dosage: 600 MILLIGRAM DAILY;  1?0?0?0
  6. EISEN(II) SULFAT [Concomitant]
     Dosage: 1 DOSAGE FORMS DAILY; 1?0?0?0
  7. CARVEDILOL. [Suspect]
     Active Substance: CARVEDILOL
     Dosage: 50 MILLIGRAM DAILY;  1?0?1?0
  8. METHIONINE [Concomitant]
     Active Substance: METHIONINE
     Dosage: 500 MILLIGRAM DAILY;   0?0?1?0
  9. PREDNISOLONE. [Concomitant]
     Active Substance: PREDNISOLONE
     Dosage: 5 MILLIGRAM DAILY;   1?0?0?0
  10. METAMIZOL [Concomitant]
     Active Substance: METAMIZOLE SODIUM
     Dosage: 20?20?20?15
  11. QUETIAPINE. [Concomitant]
     Active Substance: QUETIAPINE
     Dosage: 25 MILLIGRAM DAILY;  0?0?0?1
  12. PANTOPRAZOL [Concomitant]
     Active Substance: PANTOPRAZOLE SODIUM
     Dosage: 80 MILLIGRAM DAILY;  1?0?1?0
  13. BENSERAZIDE/LEVODOPA [Concomitant]
     Active Substance: BENSERAZIDE\LEVODOPA
     Dosage: UNIT DOSE :1 DOSAGE FORMS ,12.5|50 MG, 2?0.5?0.5?0
  14. TIOTROPIUM BROMIDE [Concomitant]
     Active Substance: TIOTROPIUM BROMIDE
     Dosage: 18 MICROGRAM DAILY;  1?0?0?0
  15. SITAGLIPTIN [Concomitant]
     Active Substance: SITAGLIPTIN
     Dosage: 25 MILLIGRAM DAILY;   1?0?0?0
  16. RAMIPRIL. [Concomitant]
     Active Substance: RAMIPRIL
     Dosage: 5 MILLIGRAM DAILY;   1?0?0?0
  17. LERCANIDIPINE [Concomitant]
     Active Substance: LERCANIDIPINE
     Dosage: 20 MILLIGRAM DAILY; 1?0?1?0
  18. ACETYLSALICYLSAURE [Concomitant]
     Active Substance: ASPIRIN
     Dosage: 100 MILLIGRAM DAILY; 0?1?0?0
  19. DEXPANTHENOL. [Concomitant]
     Active Substance: DEXPANTHENOL
     Dosage: 1 DOSAGE FORMS DAILY; 0?0?0?1
  20. KALIUMCITRAT [Concomitant]
     Active Substance: POTASSIUM CITRATE
     Dosage: 1 DOSAGE FORMS DAILY; 1?0?0?0

REACTIONS (6)
  - Angina pectoris [Unknown]
  - Electrocardiogram abnormal [Unknown]
  - General physical health deterioration [Unknown]
  - Anaemia [Unknown]
  - Bradycardia [Unknown]
  - Dyspnoea [Unknown]

NARRATIVE: CASE EVENT DATE: 20210118
